FAERS Safety Report 16840968 (Version 6)
Quarter: 2020Q2

REPORT INFORMATION
  Report Type: Report from Study
  Country: US (occurrence: US)
  Receive Date: 20190923
  Receipt Date: 20200427
  Transmission Date: 20200713
  Serious: Yes (Death, Hospitalization, Other)
  Sender: FDA-Public Use
  Company Number: US-ACTELION-A-US2019-195873

PATIENT
  Age: 88 Year
  Sex: Female
  Weight: 61.68 kg

DRUGS (4)
  1. OPSUMIT [Suspect]
     Active Substance: MACITENTAN
     Indication: PULMONARY HYPERTENSION
     Dosage: 10 MG, QD
     Route: 048
  2. ADEMPAS [Concomitant]
     Active Substance: RIOCIGUAT
     Dosage: 0.5 UNK
  3. ADEMPAS [Concomitant]
     Active Substance: RIOCIGUAT
     Indication: PRODUCT USED FOR UNKNOWN INDICATION
     Dosage: 1 MG
     Route: 065
  4. TYVASO [Concomitant]
     Active Substance: TREPROSTINIL

REACTIONS (11)
  - Death [Fatal]
  - Aspiration pleural cavity [Unknown]
  - Pleural effusion [Unknown]
  - Somnolence [Unknown]
  - Lethargy [Unknown]
  - Diarrhoea [Unknown]
  - Cough [Unknown]
  - Dyspepsia [Unknown]
  - Insomnia [Unknown]
  - Oxygen saturation decreased [Unknown]
  - Chemotherapy [Unknown]

NARRATIVE: CASE EVENT DATE: 20200311
